FAERS Safety Report 9406829 (Version 4)
Quarter: 2013Q4

REPORT INFORMATION
  Report Type: Report from Study
  Country: DE (occurrence: DE)
  Receive Date: 20130718
  Receipt Date: 20131127
  Transmission Date: 20140711
  Serious: Yes (Other)
  Sender: FDA-Public Use
  Company Number: PHHY2013DE074671

PATIENT
  Sex: Female

DRUGS (3)
  1. FTY 720 [Suspect]
     Indication: MULTIPLE SCLEROSIS
     Dosage: 0.5 MG, QD
     Route: 048
     Dates: start: 20110427, end: 20130531
  2. OPIPRAMOL [Concomitant]
     Dosage: 50 MG, QD
     Dates: start: 20080714
  3. IBUBETA [Concomitant]
     Dosage: 100 MG, QD
     Dates: start: 20071119

REACTIONS (2)
  - Breast cancer [Recovered/Resolved]
  - Fibroadenoma of breast [Recovered/Resolved]
